FAERS Safety Report 4512219-X (Version None)
Quarter: 2004Q4

REPORT INFORMATION
  Report Type: 
  Country: None (occurrence: None)
  Receive Date: 20041123
  Receipt Date: 20041111
  Transmission Date: 20050328
  Serious: Yes (Death)
  Sender: FDA-Public Use
  Company Number: 2004092071

PATIENT
  Age: 60 Year
  Sex: Female

DRUGS (4)
  1. VFEND [Suspect]
     Indication: ASPERGILLOSIS
  2. AZATHIOPRINE [Concomitant]
  3. ANTIBIOTICS (ANTIBIOTICS) [Concomitant]
  4. AMPHOTERICIN B [Concomitant]

REACTIONS (1)
  - GLYCOPEPTIDE ANTIBIOTIC RESISTANT ENTEROCOCCAL INFECTION [None]
